FAERS Safety Report 23658119 (Version 3)
Quarter: 2024Q3

REPORT INFORMATION
  Report Type: Report from Study
  Country: US (occurrence: US)
  Receive Date: 20240321
  Receipt Date: 20240913
  Transmission Date: 20241017
  Serious: Yes (Other)
  Sender: ABBVIE
  Company Number: US-ABBVIE-5683026

PATIENT
  Sex: Male

DRUGS (3)
  1. RINVOQ [Suspect]
     Active Substance: UPADACITINIB
     Indication: Ankylosing spondylitis
     Dosage: FORM STRENGTH: 15 MILLIGRAM
     Route: 048
     Dates: start: 202401
  2. RINVOQ [Suspect]
     Active Substance: UPADACITINIB
     Indication: Ankylosing spondylitis
     Route: 048
  3. RINVOQ [Suspect]
     Active Substance: UPADACITINIB
     Indication: Ankylosing spondylitis
     Dosage: STRENGTH: 15MG
     Route: 048
     Dates: start: 202401

REACTIONS (19)
  - Vasectomy [Unknown]
  - Back pain [Recovering/Resolving]
  - Joint range of motion decreased [Unknown]
  - Joint swelling [Recovering/Resolving]
  - Loss of personal independence in daily activities [Unknown]
  - Dysstasia [Unknown]
  - Musculoskeletal stiffness [Unknown]
  - Arthropathy [Not Recovered/Not Resolved]
  - Postoperative wound infection [Unknown]
  - Pain [Recovering/Resolving]
  - Discomfort [Recovering/Resolving]
  - Infection [Not Recovered/Not Resolved]
  - Furuncle [Not Recovered/Not Resolved]
  - Skin papilloma [Not Recovered/Not Resolved]
  - Breakthrough pain [Not Recovered/Not Resolved]
  - Peripheral swelling [Not Recovered/Not Resolved]
  - Arthralgia [Not Recovered/Not Resolved]
  - Mobility decreased [Unknown]
  - Gait disturbance [Unknown]

NARRATIVE: CASE EVENT DATE: 20240101
